FAERS Safety Report 5264993-5 (Version None)
Quarter: 2007Q1

REPORT INFORMATION
  Report Type: 
  Country: None (occurrence: None)
  Receive Date: 20070314
  Receipt Date: 20070305
  Transmission Date: 20070707
  Serious: Yes (Hospitalization)
  Sender: FDA-Public Use
  Company Number: JP-ROCHE-486265

PATIENT
  Age: 59 Year
  Sex: Female

DRUGS (5)
  1. PEGASYS [Suspect]
     Indication: HEPATITIS C
     Route: 058
     Dates: start: 20061213, end: 20070221
  2. NORVASC [Concomitant]
     Route: 048
  3. RENIVACE [Concomitant]
     Route: 048
  4. HALCION [Concomitant]
     Route: 048
  5. VOLTAREN [Concomitant]
     Route: 054

REACTIONS (1)
  - ACUTE PROMYELOCYTIC LEUKAEMIA [None]
